FAERS Safety Report 4553323-X (Version None)
Quarter: 2005Q1

REPORT INFORMATION
  Report Type: 
  Country: None (occurrence: None)
  Receive Date: 20050112
  Receipt Date: 20050103
  Transmission Date: 20050727
  Serious: Yes (Life-Threatening, Hospitalization, Other)
  Sender: FDA-Public Use
  Company Number: 200510013GDS

PATIENT
  Age: 73 Year
  Sex: Male

DRUGS (5)
  1. ASPIRIN [Suspect]
     Indication: MYOCARDIAL ISCHAEMIA
     Dosage: 100 MG, QD, ORAL
     Route: 048
     Dates: start: 20010101, end: 20041112
  2. BESITRAN 50 MG (SERTRALINE HYDROCHLORIDE) [Suspect]
     Indication: DEPRESSION
     Dosage: 50 MG, QD, ORAL
     Route: 048
     Dates: start: 20020101
  3. EMCONCOR (BISOPROLOL HEMIFUMARATE) [Concomitant]
  4. PREVENCOR [Concomitant]
  5. ALLOPURINOL [Concomitant]

REACTIONS (6)
  - ACUTE MYOCARDIAL INFARCTION [None]
  - DRUG INTERACTION [None]
  - GASTRIC ULCER [None]
  - GASTROINTESTINAL HAEMORRHAGE [None]
  - OESOPHAGITIS [None]
  - POST PROCEDURAL COMPLICATION [None]
